FAERS Safety Report 6095620-5 (Version None)
Quarter: 2009Q1

REPORT INFORMATION
  Report Type: 
  Country: None (occurrence: None)
  Receive Date: 20090227
  Receipt Date: 20080613
  Transmission Date: 20090719
  Serious: No
  Sender: FDA-Public Use
  Company Number: A0726873A

PATIENT
  Age: 49 Year
  Sex: Male

DRUGS (2)
  1. LAMICTAL [Suspect]
     Indication: BIPOLAR DISORDER
     Dosage: 25MG PER DAY
     Route: 048
     Dates: start: 20080417
  2. LEVOTHYROXINE SODIUM [Concomitant]

REACTIONS (12)
  - ACNE [None]
  - ASTHENIA [None]
  - ASTHENOPIA [None]
  - CHILLS [None]
  - CHROMATURIA [None]
  - DYSPHAGIA [None]
  - FATIGUE [None]
  - LYMPHADENOPATHY [None]
  - OROPHARYNGEAL PAIN [None]
  - PRURITUS [None]
  - RESPIRATORY RATE INCREASED [None]
  - SUNBURN [None]
